FAERS Safety Report 14856430 (Version 1)
Quarter: 2018Q2

REPORT INFORMATION
  Report Type: Spontaneous
  Country: US (occurrence: US)
  Receive Date: 20180507
  Receipt Date: 20180507
  Transmission Date: 20180711
  Serious: No
  Sender: FDA-Public Use
  Company Number: US-ROCHE-2052940

PATIENT
  Sex: Male

DRUGS (2)
  1. ESBRIET [Suspect]
     Active Substance: PIRFENIDONE
     Indication: PRODUCT USED FOR UNKNOWN INDICATION
     Route: 065
  2. N-ACETYL CYSTEINE [Concomitant]
     Dosage: SUPPLEMENT
     Route: 065

REACTIONS (2)
  - Muscle atrophy [Unknown]
  - Weight decreased [Unknown]
